FAERS Safety Report 8915120 (Version 2)
Quarter: 2012Q4

REPORT INFORMATION
  Report Type: 
  Country: JP (occurrence: JP)
  Receive Date: 20121119
  Receipt Date: 20121130
  Transmission Date: 20130627
  Serious: Yes (Hospitalization, Other)
  Sender: FDA-Public Use
  Company Number: JP-ASTRAZENECA-2012SE86748

PATIENT
  Age: 47 Year
  Sex: Female
  Weight: 67 kg

DRUGS (7)
  1. SEROQUEL [Suspect]
     Indication: SCHIZOPHRENIA
     Route: 048
     Dates: start: 20110607, end: 20121030
  2. SEROQUEL [Suspect]
     Indication: SCHIZOPHRENIA
     Route: 048
  3. LONASEN [Suspect]
     Route: 048
     Dates: end: 20121030
  4. LONASEN [Suspect]
     Route: 048
  5. WYPAX [Concomitant]
     Dates: end: 20121030
  6. FLUNITRAZEPAM [Concomitant]
     Dates: end: 20121030
  7. AKINETON [Concomitant]
     Route: 048

REACTIONS (3)
  - Schizophrenia [Unknown]
  - Blood glucose increased [Unknown]
  - Drug ineffective [Unknown]
